FAERS Safety Report 6942952-1 (Version None)
Quarter: 2010Q3

REPORT INFORMATION
  Report Type: 
  Country: None (occurrence: None)
  Receive Date: 20100823
  Receipt Date: 20100806
  Transmission Date: 20110219
  Serious: Yes (Death)
  Sender: FDA-Public Use
  Company Number: 2010002981

PATIENT
  Age: 74 Year
  Sex: Female

DRUGS (7)
  1. ERLOTINIB HYDROCHLORIDE [Suspect]
     Indication: NON-SMALL CELL LUNG CANCER
     Dosage: (75 MG, QD), ORAL
     Route: 048
     Dates: start: 20090228, end: 20090303
  2. BETAMETHASONE [Concomitant]
  3. POLAPREZINC (POLAPREZINC) [Concomitant]
  4. URSODIOL [Concomitant]
  5. MELOXICAM [Concomitant]
  6. ZONISAMIDE [Concomitant]
  7. LOXONIN (LOXOPROFEN SODIUM) [Concomitant]

REACTIONS (4)
  - COMA [None]
  - MALIGNANT NEOPLASM PROGRESSION [None]
  - NON-SMALL CELL LUNG CANCER STAGE IV [None]
  - SOMNOLENCE [None]
